FAERS Safety Report 9277321 (Version 1)
Quarter: 2013Q2

REPORT INFORMATION
  Report Type: Spontaneous
  Country: US (occurrence: None)
  Receive Date: 20130503
  Receipt Date: 20130503
  Transmission Date: 20140414
  Serious: Yes (Hospitalization)
  Sender: FDA-Public Use
  Company Number: None

PATIENT
  Sex: Female

DRUGS (8)
  1. MEANINGFUL BEAUTY ANTI-AGING CREAM [Suspect]
     Indication: THERAPEUTIC SKIN CARE TOPICAL
     Dosage: DAILY, SKIN CARE
  2. MEANINGFUL BEAUTY EYE LIFTING CREAM [Suspect]
     Indication: THERAPEUTIC SKIN CARE TOPICAL
     Dosage: DAILY, SKIN CARE
  3. MEANINGFUL BEAUTY EYE LIFTING CREAM [Suspect]
     Indication: THERAPEUTIC SKIN CARE TOPICAL
     Dosage: TWICE DAILY, SKIN CARE
  4. MEANINGFUL BEAUTY ANTOXIDANT DAY CREME SPF 20 [Suspect]
     Indication: DRY SKIN PROPHYLAXIS
     Dosage: DAILY, SKIN CARE
  5. MEANINGFUL BEAUTY CLEANSING MASQUE [Suspect]
     Indication: THERAPEUTIC SKIN CARE TOPICAL
  6. MEANINGFUL BEAUTY CLEANSING MASQUE [Suspect]
     Indication: THERAPEUTIC SKIN CARE TOPICAL
  7. MEANINGFUL BEAUTY CLEANSING MASQUE [Suspect]
     Indication: SKIN EXFOLIATION
     Dosage: ONCE A WEEK, SKIN CARE
  8. MEANINGFUL BEAUTY EYE LIFTING CREAM [Suspect]
     Indication: THERAPEUTIC SKIN CARE TOPICAL

REACTIONS (2)
  - Blister infected [None]
  - Hypertension [None]
